FAERS Safety Report 9761567 (Version 1)
Quarter: 2013Q3

REPORT INFORMATION
  Report Type: Spontaneous
  Country: BR (occurrence: None)
  Receive Date: 20130816
  Receipt Date: 20130816
  Transmission Date: 20140515
  Serious: Yes (Other)
  Sender: FDA-Public Use
  Company Number: DSU-2013-04267

PATIENT
  Age: 74 Year
  Sex: Female

DRUGS (1)
  1. OLMETEC ANLO [Suspect]
     Indication: BLOOD PRESSURE
     Dosage: 5/20MG
     Route: 048
     Dates: start: 20110805

REACTIONS (1)
  - Cardiac operation [None]
